FAERS Safety Report 14175175 (Version 1)
Quarter: 2017Q4

REPORT INFORMATION
  Report Type: Spontaneous
  Country: US (occurrence: US)
  Receive Date: 20171109
  Receipt Date: 20171109
  Transmission Date: 20180321
  Serious: No
  Sender: FDA-Public Use
  Company Number: US-BAYER-2017-204318

PATIENT
  Age: 70 Year
  Sex: Female
  Weight: 63 kg

DRUGS (3)
  1. MILK OF MAGNESIA ORIGINAL [Suspect]
     Active Substance: MAGNESIUM HYDROXIDE
     Dosage: UNK
     Route: 048
  2. MIRALAX [Suspect]
     Active Substance: POLYETHYLENE GLYCOL 3350
     Dosage: UNK
     Route: 048
  3. MILK OF MAGNESIA [Suspect]
     Active Substance: MAGNESIUM HYDROXIDE
     Dosage: UNK
     Route: 048

REACTIONS (5)
  - Off label use [Unknown]
  - Wrong technique in product usage process [Unknown]
  - Intentional product use issue [None]
  - Dysgeusia [None]
  - Product use in unapproved indication [Unknown]
